FAERS Safety Report 6634243-3 (Version None)
Quarter: 2010Q1

REPORT INFORMATION
  Report Type: 
  Country: None (occurrence: None)
  Receive Date: 20100315
  Receipt Date: 20100304
  Transmission Date: 20100710
  Serious: Yes (Death, Hospitalization, Other)
  Sender: FDA-Public Use
  Company Number: DE-WYE-G05721910

PATIENT
  Sex: Female
  Weight: 45 kg

DRUGS (15)
  1. RAPAMUNE [Suspect]
     Indication: RENAL TRANSPLANT
     Dosage: UNKNOWN
  2. PREDNISOLONE [Concomitant]
  3. LEVOTHYROXINE [Concomitant]
  4. FOLSAN [Concomitant]
  5. FUROSEMIDE [Concomitant]
  6. PROGRAF [Concomitant]
  7. PANTOPRAZOLE [Concomitant]
  8. SIMVASTATIN [Concomitant]
  9. VIGANTOLETTEN [Concomitant]
  10. GLIMEPIRIDE [Concomitant]
  11. BISOPROLOL [Concomitant]
  12. PHENPROCOUMON [Concomitant]
     Dosage: ACCORDING TO INTERNATIONAL NORMALIZED RATIO
  13. ZYVOXID [Suspect]
     Indication: RENAL ABSCESS
     Route: 048
     Dates: start: 20100115, end: 20100127
  14. ZYVOXID [Suspect]
     Route: 042
     Dates: start: 20091221, end: 20100114
  15. GABAPENTIN [Concomitant]

REACTIONS (9)
  - CARDIAC FAILURE [None]
  - LACTIC ACIDOSIS [None]
  - MITRAL VALVE INCOMPETENCE [None]
  - MULTI-ORGAN FAILURE [None]
  - PNEUMONITIS [None]
  - RENAL ABSCESS [None]
  - RENAL FAILURE [None]
  - TACHYARRHYTHMIA [None]
  - UROSEPSIS [None]
